FAERS Safety Report 9931507 (Version 1)
Quarter: 2014Q1

REPORT INFORMATION
  Report Type: Spontaneous
  Country: CA (occurrence: None)
  Receive Date: 20140224
  Receipt Date: 20140224
  Transmission Date: 20141002
  Serious: Yes (Other)
  Sender: FDA-Public Use
  Company Number: CA-145500

PATIENT
  Sex: Female

DRUGS (1)
  1. WINRHO SDF LIQUID [Suspect]
     Indication: VAGINAL HAEMORRHAGE
     Dosage: NOT OTHERWISE SPECIFIED
     Route: 042
     Dates: start: 20130403, end: 20130403

REACTIONS (5)
  - Anaphylactic reaction [None]
  - Hypersensitivity [None]
  - Heart rate increased [None]
  - Respiratory rate increased [None]
  - Blood pressure increased [None]
